FAERS Safety Report 9384272 (Version 1)
Quarter: 2013Q3

REPORT INFORMATION
  Report Type: Spontaneous
  Country: US (occurrence: None)
  Receive Date: 20130702
  Receipt Date: 20130702
  Transmission Date: 20140515
  Serious: No
  Sender: FDA-Public Use
  Company Number: None

PATIENT
  Age: 67 Year
  Sex: Male

DRUGS (2)
  1. REVLIMID 5 MG CELGENE [Suspect]
     Indication: MYELODYSPLASTIC SYNDROME
     Dosage: X21D/28D
     Route: 048
     Dates: start: 200811, end: 200909
  2. AZACITIDINE [Concomitant]

REACTIONS (2)
  - Full blood count decreased [None]
  - Platelet count decreased [None]
